FAERS Safety Report 8253309-8 (Version None)
Quarter: 2012Q2

REPORT INFORMATION
  Report Type: 
  Country: None (occurrence: None)
  Receive Date: 20120402
  Receipt Date: 20120308
  Transmission Date: 20120825
  Serious: No
  Sender: FDA-Public Use
  Company Number: US-AMGEN-USASP2012015301

PATIENT
  Sex: Male

DRUGS (1)
  1. ENBREL [Suspect]
     Indication: RHEUMATOID ARTHRITIS
     Dosage: 50 MG, QWK
     Dates: start: 20111028, end: 20120301

REACTIONS (14)
  - SENSITIVITY OF TEETH [None]
  - AGEUSIA [None]
  - RHEUMATOID ARTHRITIS [None]
  - TREMOR [None]
  - INTERNATIONAL NORMALISED RATIO ABNORMAL [None]
  - HYPERHIDROSIS [None]
  - PHARYNGITIS STREPTOCOCCAL [None]
  - ORAL PAIN [None]
  - PNEUMONIA [None]
  - PAIN [None]
  - GINGIVAL PAIN [None]
  - APHAGIA [None]
  - HEADACHE [None]
  - NASOPHARYNGITIS [None]
